FAERS Safety Report 7741460-8 (Version None)
Quarter: 2011Q3

REPORT INFORMATION
  Report Type: 
  Country: None (occurrence: None)
  Receive Date: 20110909
  Receipt Date: 20110826
  Transmission Date: 20111222
  Serious: Yes (Other)
  Sender: FDA-Public Use
  Company Number: US-WATSON-2011-13718

PATIENT
  Sex: Male
  Weight: 28.481 kg

DRUGS (6)
  1. DEXTROAMPHETAMINE                  /00016601/ [Concomitant]
     Indication: PRODUCT USED FOR UNKNOWN INDICATION
     Dosage: 1 TID
     Route: 048
     Dates: end: 20091101
  2. LOXAPINE SUCCINATE [Suspect]
     Indication: SLEEP DISORDER
     Dosage: ^FOR A FEW DAYS^
     Route: 048
     Dates: start: 20091001, end: 20091001
  3. STRATTERA [Concomitant]
     Indication: ATTENTION DEFICIT/HYPERACTIVITY DISORDER
     Dosage: 1 TAB DAILY
     Route: 048
     Dates: end: 20091101
  4. STRATTERA [Concomitant]
     Indication: SLEEP DISORDER
  5. ZYPREXA [Concomitant]
     Indication: SLEEP DISORDER
  6. ZYPREXA [Concomitant]
     Indication: ATTENTION DEFICIT/HYPERACTIVITY DISORDER
     Dosage: 1 TAB DAILY
     Route: 048
     Dates: end: 20091001

REACTIONS (16)
  - NERVOUS SYSTEM DISORDER [None]
  - INSOMNIA [None]
  - HEART RATE INCREASED [None]
  - PSYCHOMOTOR HYPERACTIVITY [None]
  - ATTENTION DEFICIT/HYPERACTIVITY DISORDER [None]
  - TIC [None]
  - OROPHARYNGEAL BLISTERING [None]
  - MASKED FACIES [None]
  - DRUG HYPERSENSITIVITY [None]
  - EXCESSIVE EYE BLINKING [None]
  - MUSCLE TWITCHING [None]
  - TONGUE BLISTERING [None]
  - DYSKINESIA [None]
  - TARDIVE DYSKINESIA [None]
  - LIP DRY [None]
  - HEART RATE IRREGULAR [None]
